FAERS Safety Report 21453059 (Version 1)
Quarter: 2022Q4

REPORT INFORMATION
  Report Type: Spontaneous
  Country: US (occurrence: US)
  Receive Date: 20221013
  Receipt Date: 20221013
  Transmission Date: 20230112
  Serious: No
  Sender: FDA-Public Use
  Company Number: US-BRISTOL-MYERS SQUIBB COMPANY-2022-118301

PATIENT
  Age: 79 Year
  Sex: Female
  Weight: 11.79 kg

DRUGS (1)
  1. POMALYST [Suspect]
     Active Substance: POMALIDOMIDE
     Indication: Plasma cell myeloma
     Dosage: DAILY 21 ON 7 OFF
     Route: 048

REACTIONS (2)
  - Abdominal pain upper [Recovering/Resolving]
  - Flatulence [Recovering/Resolving]
